FAERS Safety Report 20136596 (Version 1)
Quarter: 2021Q4

REPORT INFORMATION
  Report Type: Spontaneous
  Country: US (occurrence: None)
  Receive Date: 20211201
  Receipt Date: 20211201
  Transmission Date: 20220303
  Serious: Yes (Hospitalization)
  Sender: FDA-Public Use
  Company Number: None

PATIENT
  Sex: Male

DRUGS (22)
  1. ENBREL [Suspect]
     Active Substance: ETANERCEPT
     Indication: Rheumatoid arthritis
     Dosage: OTHER FREQUENCY : EVERY WEEK;?
     Route: 058
     Dates: start: 20180215
  2. CARVEDILOL [Concomitant]
     Active Substance: CARVEDILOL
  3. CELECOXIB [Concomitant]
     Active Substance: CELECOXIB
  4. CIPROFLOXACIN [Concomitant]
     Active Substance: CIPROFLOXACIN
  5. DICLOFENAC [Concomitant]
     Active Substance: DICLOFENAC
  6. DULOXETINE [Concomitant]
     Active Substance: DULOXETINE
  7. EZETIMIBE [Concomitant]
     Active Substance: EZETIMIBE
  8. FLUTICASONE [Concomitant]
     Active Substance: FLUTICASONE
  9. FOLIC ACID [Concomitant]
     Active Substance: FOLIC ACID
  10. FUROSEMIDE [Concomitant]
     Active Substance: FUROSEMIDE
  11. INSULIN NOS [Concomitant]
     Active Substance: INSULIN NOS
  12. LEVOTHYROXINE [Concomitant]
     Active Substance: LEVOTHYROXINE
  13. LIOTHYRONINE [Concomitant]
     Active Substance: LIOTHYRONINE
  14. LOSARTAN POTASSIUM [Concomitant]
     Active Substance: LOSARTAN POTASSIUM
  15. METFORMIN [Concomitant]
     Active Substance: METFORMIN HYDROCHLORIDE
  16. MYRBETRIQ [Concomitant]
     Active Substance: MIRABEGRON
  17. NUCYNTA ER [Concomitant]
     Active Substance: TAPENTADOL HYDROCHLORIDE
  18. NYSTOP [Concomitant]
     Active Substance: NYSTATIN
  19. OMEPRAZOLE [Concomitant]
     Active Substance: OMEPRAZOLE
  20. OZEMPIC [Concomitant]
     Active Substance: SEMAGLUTIDE
  21. SPIRONOLACTONE; TRIAMCINOLON [Concomitant]
  22. TAMSULOSIN; TRESIBA [Concomitant]

REACTIONS (3)
  - Cardiac disorder [None]
  - Cystitis [None]
  - Atrial fibrillation [None]
